FAERS Safety Report 23283305 (Version 1)
Quarter: 2023Q4

REPORT INFORMATION
  Report Type: Spontaneous
  Country: GB (occurrence: GB)
  Receive Date: 20231211
  Receipt Date: 20231211
  Transmission Date: 20240110
  Serious: Yes (Other)
  Sender: FDA-Public Use
  Company Number: None

PATIENT
  Age: 35 Year
  Sex: Male
  Weight: 72 kg

DRUGS (2)
  1. CIMETIDINE [Suspect]
     Active Substance: CIMETIDINE
     Indication: Product used for unknown indication
     Dosage: 200 MILLIGRAM, QD
     Route: 065
     Dates: start: 20230928, end: 20231110
  2. CALCIUM CARBONATE\SODIUM ALGINATE\SODIUM BICARBONATE [Concomitant]
     Active Substance: CALCIUM CARBONATE\SODIUM ALGINATE\SODIUM BICARBONATE
     Dosage: 10 MILLILITER, QID
     Route: 065
     Dates: start: 20231110, end: 20231122

REACTIONS (5)
  - Hypersensitivity [Recovered/Resolved]
  - Eye swelling [Unknown]
  - Dry skin [Unknown]
  - Lethargy [Unknown]
  - Rash [Unknown]
